FAERS Safety Report 7205655-4 (Version None)
Quarter: 2010Q4

REPORT INFORMATION
  Report Type: 
  Country: None (occurrence: None)
  Receive Date: 20101231
  Receipt Date: 20101220
  Transmission Date: 20110411
  Serious: Yes (Other)
  Sender: FDA-Public Use
  Company Number: US-BAYER-2010-005046

PATIENT
  Sex: Male

DRUGS (4)
  1. LEVITRA [Suspect]
     Indication: ERECTILE DYSFUNCTION
     Dosage: UNK UNK, PRN
     Route: 048
     Dates: start: 20081201
  2. LEVITRA [Suspect]
     Dosage: 10 MG, UNK
     Route: 048
     Dates: start: 20101210
  3. LEVITRA [Suspect]
     Dosage: 60 MG, UNK
     Dates: start: 20101212
  4. UNCODEABLE ^UNCLASSIFIABLE^ [Concomitant]

REACTIONS (3)
  - CYANOPSIA [None]
  - ERECTILE DYSFUNCTION [None]
  - NAUSEA [None]
